FAERS Safety Report 5056911-X (Version None)
Quarter: 2006Q3

REPORT INFORMATION
  Report Type: 
  Country: None (occurrence: None)
  Receive Date: 20060721
  Receipt Date: 20060713
  Transmission Date: 20061208
  Serious: Yes (Death, Hospitalization)
  Sender: FDA-Public Use
  Company Number: DE-ABBOTT-06P-062-0338103-00

PATIENT
  Sex: Male

DRUGS (5)
  1. HUMIRA [Suspect]
     Indication: PSORIASIS
     Route: 058
     Dates: start: 20060410, end: 20060601
  2. HUMIRA [Suspect]
     Indication: PSORIATIC ARTHROPATHY
  3. TORSEMIDE [Concomitant]
     Indication: DRUG USE FOR UNKNOWN INDICATION
     Route: 048
  4. CARVEDILOL [Concomitant]
     Indication: DRUG USE FOR UNKNOWN INDICATION
     Route: 048
  5. TILIDINE [Concomitant]
     Indication: DRUG USE FOR UNKNOWN INDICATION

REACTIONS (8)
  - CARDIAC FAILURE [None]
  - CARDIOMEGALY [None]
  - DIVERTICULAR PERFORATION [None]
  - FLATULENCE [None]
  - IMPAIRED HEALING [None]
  - PERICARDIAL EFFUSION [None]
  - PERITONITIS [None]
  - PNEUMONIA [None]
